FAERS Safety Report 9292287 (Version 1)
Quarter: 2013Q2

REPORT INFORMATION
  Report Type: Spontaneous
  Country: US (occurrence: None)
  Receive Date: 20130515
  Receipt Date: 20130515
  Transmission Date: 20140414
  Serious: Yes (Death)
  Sender: FDA-Public Use
  Company Number: None

PATIENT
  Age: 19 Year
  Sex: Male
  Weight: 76.5 kg

DRUGS (1)
  1. PROPOFOL [Suspect]
     Indication: STATUS EPILEPTICUS
     Dosage: 70-100 MCG/KG/MIN  CONT INFUSION  IV DRIP
     Route: 041
     Dates: start: 20120828, end: 20120901

REACTIONS (6)
  - Metabolic acidosis [None]
  - Rhabdomyolysis [None]
  - Hypertriglyceridaemia [None]
  - Cardiac disorder [None]
  - Ventricular tachycardia [None]
  - Pulseless electrical activity [None]
